FAERS Safety Report 6671081-X (Version None)
Quarter: 2010Q2

REPORT INFORMATION
  Report Type: 
  Country: None (occurrence: None)
  Receive Date: 20100407
  Receipt Date: 20100324
  Transmission Date: 20101027
  Serious: Yes (Other)
  Sender: FDA-Public Use
  Company Number: US-WATSON-2010-04236

PATIENT
  Age: 11 Year
  Sex: Male

DRUGS (3)
  1. CLONIDINE [Suspect]
     Indication: BIPOLAR DISORDER
     Dosage: 0.2 MG, BID
  2. METHYLPHENIDATE HYDROCHLORIDE [Suspect]
     Indication: BIPOLAR DISORDER
     Dosage: 108 MG, DAILY
  3. ARIPIPRAZOLE [Suspect]
     Indication: BIPOLAR DISORDER
     Dosage: 15 MG, BID

REACTIONS (2)
  - DYSTONIA [None]
  - WITHDRAWAL SYNDROME [None]
